FAERS Safety Report 8534103 (Version 3)
Quarter: 2012Q4

REPORT INFORMATION
  Report Type: 
  Country: AU (occurrence: AU)
  Receive Date: 20120427
  Receipt Date: 20121212
  Transmission Date: 20130627
  Serious: Yes (Other)
  Sender: FDA-Public Use
  Company Number: AU-ASTRAZENECA-2012SE25688

PATIENT
  Age: 70 Year
  Sex: Female
  Weight: 60 kg

DRUGS (7)
  1. SYMBICORT [Suspect]
     Indication: ASTHMA
     Dosage: 200/6, UNKNOWN FREQUENCY
     Route: 055
     Dates: start: 201108
  2. SYMBICORT [Suspect]
     Indication: ASTHMA
     Dosage: 2/52, Two times a day
     Route: 055
  3. SYMBICORT [Suspect]
     Indication: ASTHMA
     Dosage: 2/52, Daily
     Route: 055
  4. XALATAN [Concomitant]
     Indication: GLAUCOMA
  5. ALPHAPRIL [Concomitant]
     Indication: BLOOD PRESSURE
  6. ACETEC [Concomitant]
     Indication: HYPERTENSION
     Route: 048
  7. BRICANYL [Concomitant]

REACTIONS (11)
  - Glaucoma [Recovered/Resolved]
  - Thyroid pain [Recovered/Resolved]
  - Malaise [Recovered/Resolved]
  - Hepatic pain [Recovered/Resolved]
  - Vision blurred [Recovered/Resolved]
  - Tremor [Recovered/Resolved]
  - Nausea [Recovered/Resolved]
  - Mood altered [Recovered/Resolved]
  - Blood pressure increased [Recovered/Resolved]
  - Cataract [Unknown]
  - Intentional drug misuse [Unknown]
